FAERS Safety Report 24650116 (Version 2)
Quarter: 2025Q3

REPORT INFORMATION
  Report Type: Report from Study
  Country: ZA (occurrence: ZA)
  Receive Date: 20241122
  Receipt Date: 20250803
  Transmission Date: 20251021
  Serious: Yes (Other)
  Sender: ALEXION PHARMACEUTICALS
  Company Number: ZA-AstraZeneca-CH-00749886A

PATIENT
  Age: 89 Year
  Sex: Female

DRUGS (7)
  1. DAPAGLIFLOZIN [Suspect]
     Active Substance: DAPAGLIFLOZIN
  2. LANOXIN [Concomitant]
     Active Substance: DIGOXIN
     Route: 065
  3. FUROSEMIDE [Concomitant]
     Active Substance: FUROSEMIDE
     Route: 065
  4. Spiractin [Concomitant]
     Route: 065
  5. Equisin [Concomitant]
     Route: 065
  6. BISOPROLOL FUMARATE [Concomitant]
     Active Substance: BISOPROLOL FUMARATE
     Route: 065
  7. PREDATOR [Concomitant]
     Active Substance: LIDOCAINE HYDROCHLORIDE
     Route: 065

REACTIONS (1)
  - Neoplasm malignant [Unknown]
